FAERS Safety Report 12701011 (Version 1)
Quarter: 2016Q3

REPORT INFORMATION
  Report Type: Spontaneous
  Country: US (occurrence: None)
  Receive Date: 20160830
  Receipt Date: 20160830
  Transmission Date: 20161109
  Serious: Yes (Life-Threatening)
  Sender: FDA-Public Use
  Company Number: None

PATIENT
  Age: 34 Year
  Sex: Female
  Weight: 81.65 kg

DRUGS (1)
  1. METHACARBAMOL, 40 MG [Suspect]
     Active Substance: METHOCARBAMOL
     Indication: PAIN
     Dosage: 30 TABLET(S) EVERY 12 HOURS TAKEN BY MOUTH
     Route: 048
     Dates: start: 20130910, end: 20160330

REACTIONS (2)
  - Vomiting [None]
  - Migraine [None]

NARRATIVE: CASE EVENT DATE: 20160201
